FAERS Safety Report 11101621 (Version 1)
Quarter: 2015Q2

REPORT INFORMATION
  Report Type: Spontaneous
  Country: US (occurrence: US)
  Receive Date: 20150508
  Receipt Date: 20150508
  Transmission Date: 20150821
  Serious: Yes (Death, Other)
  Sender: FDA-Public Use
  Company Number: US-BAXTER-2015BAX023688

PATIENT
  Age: 84 Year
  Sex: Male

DRUGS (3)
  1. CEFTRIAXONE AND DEXTROSE [Suspect]
     Active Substance: CEFTRIAXONE SODIUM
     Indication: OFF LABEL USE
  2. DAPTOMYCIN. [Suspect]
     Active Substance: DAPTOMYCIN
     Indication: ENDOCARDITIS ENTEROCOCCAL
     Route: 065
  3. CEFTRIAXONE AND DEXTROSE [Suspect]
     Active Substance: CEFTRIAXONE SODIUM
     Indication: ENDOCARDITIS ENTEROCOCCAL
     Route: 042

REACTIONS (3)
  - Endocarditis enterococcal [Fatal]
  - Infection [Fatal]
  - Drug ineffective for unapproved indication [Not Recovered/Not Resolved]
